FAERS Safety Report 19649229 (Version 3)
Quarter: 2021Q3

REPORT INFORMATION
  Report Type: Report from Study
  Country: US (occurrence: US)
  Receive Date: 20210802
  Receipt Date: 20210916
  Transmission Date: 20211014
  Serious: No
  Sender: FDA-Public Use
  Company Number: NVSC2021US173680

PATIENT
  Sex: Male

DRUGS (1)
  1. ENTRESTO [Suspect]
     Active Substance: SACUBITRIL\VALSARTAN
     Indication: PRODUCT USED FOR UNKNOWN INDICATION
     Dosage: 49 MG, BID (49/51 MG)
     Route: 048

REACTIONS (6)
  - Swelling [Unknown]
  - Urine output decreased [Unknown]
  - Pain in extremity [Unknown]
  - Oedema peripheral [Unknown]
  - Weight increased [Unknown]
  - Eye disorder [Recovering/Resolving]
